FAERS Safety Report 5884504-0 (Version None)
Quarter: 2008Q3

REPORT INFORMATION
  Report Type: 
  Country: None (occurrence: None)
  Receive Date: 20080916
  Receipt Date: 20080707
  Transmission Date: 20090109
  Serious: Yes (Other)
  Sender: FDA-Public Use
  Company Number: DK-JNJFOC-20080700981

PATIENT
  Age: 79 Year
  Sex: Female

DRUGS (4)
  1. REMICADE [Suspect]
     Dosage: ^2 SERIES^
     Route: 042
  2. REMICADE [Suspect]
     Indication: RHEUMATOID ARTHRITIS
     Dosage: ^FOUR SERIES^
     Route: 042
  3. METHOTREXATE [Concomitant]
  4. PREDNISOLONE [Concomitant]

REACTIONS (1)
  - BOVINE TUBERCULOSIS [None]
